FAERS Safety Report 20454536 (Version 2)
Quarter: 2022Q1

REPORT INFORMATION
  Report Type: Report from Study
  Country: US (occurrence: US)
  Receive Date: 20220210
  Receipt Date: 20220325
  Transmission Date: 20220423
  Serious: Yes (Other)
  Sender: FDA-Public Use
  Company Number: US-VERTEX PHARMACEUTICALS-2021-003313

PATIENT
  Sex: Female

DRUGS (21)
  1. TRIKAFTA [Suspect]
     Active Substance: ELEXACAFTOR\IVACAFTOR\TEZACAFTOR
     Indication: Cystic fibrosis
     Dosage: 2 ORANGE TABS (100 MG ELEXA/50 MG TEZA/75 MG IVA) AM; 1 BLUE TAB (150 MG IVA) PM
     Route: 048
     Dates: start: 20200515, end: 2021
  2. TRIKAFTA [Suspect]
     Active Substance: ELEXACAFTOR\IVACAFTOR\TEZACAFTOR
     Dosage: 2 ORANGE TABS AM; NO EVENING TAB
     Route: 048
     Dates: start: 2021, end: 2021
  3. TRIKAFTA [Suspect]
     Active Substance: ELEXACAFTOR\IVACAFTOR\TEZACAFTOR
     Dosage: 1 ORANGE TAB (100 MG ELEXACAFTOR/50 MG TEZACAFTOR/75 MG IVACAFTOR) PER DAY
     Route: 048
     Dates: start: 202201
  4. PULMOZYME [Concomitant]
     Active Substance: DORNASE ALFA
  5. ERGOCALCIFEROL [Concomitant]
     Active Substance: ERGOCALCIFEROL
  6. BUPROPION [Concomitant]
     Active Substance: BUPROPION
  7. VENLAFAXINE HYDROCHLORIDE [Concomitant]
     Active Substance: VENLAFAXINE HYDROCHLORIDE
  8. LEVALBUTEROL [Concomitant]
     Active Substance: LEVALBUTEROL
  9. MIRTAZAPINE [Concomitant]
     Active Substance: MIRTAZAPINE
  10. AZITHROMYCIN [Concomitant]
     Active Substance: AZITHROMYCIN
  11. LORATADINE [Concomitant]
     Active Substance: LORATADINE
  12. FAMOTIDINE [Concomitant]
     Active Substance: FAMOTIDINE
  13. YAZ [Concomitant]
     Active Substance: DROSPIRENONE\ETHINYL ESTRADIOL
  14. CAYSTON [Concomitant]
     Active Substance: AZTREONAM
  15. DROSPIRENONE AND ETHINYL ESTRADIOL [Concomitant]
     Active Substance: DROSPIRENONE\ETHINYL ESTRADIOL
  16. PERTZYE [Concomitant]
     Active Substance: PANCRELIPASE AMYLASE\PANCRELIPASE LIPASE\PANCRELIPASE PROTEASE
  17. SODIUM CHLORIDE [Concomitant]
     Active Substance: SODIUM CHLORIDE
  18. VITAMIN D3 [Concomitant]
     Active Substance: CHOLECALCIFEROL
  19. ADMELOG [Concomitant]
     Active Substance: INSULIN LISPRO
  20. BASAGLAR [Concomitant]
     Active Substance: INSULIN GLARGINE
  21. ZINC [Concomitant]
     Active Substance: ZINC

REACTIONS (6)
  - Somnolence [Recovered/Resolved]
  - Amenorrhoea [Recovered/Resolved]
  - Feeling abnormal [Recovered/Resolved]
  - Hepatic enzyme increased [Not Recovered/Not Resolved]
  - Asthenia [Recovered/Resolved]
  - Night sweats [Recovered/Resolved]

NARRATIVE: CASE EVENT DATE: 20210101
